FAERS Safety Report 19421591 (Version 1)
Quarter: 2021Q2

REPORT INFORMATION
  Report Type: Spontaneous
  Country: US (occurrence: US)
  Receive Date: 20210615
  Receipt Date: 20210615
  Transmission Date: 20210717
  Serious: Yes (Hospitalization)
  Sender: FDA-Public Use
  Company Number: None

PATIENT
  Age: 74 Year
  Sex: Male
  Weight: 85.2 kg

DRUGS (4)
  1. COMPAZINE 10 MG [Concomitant]
     Dates: start: 20210526
  2. ONDANSETRON. [Concomitant]
     Active Substance: ONDANSETRON
     Dates: start: 20210526
  3. IMODIUM AD [Concomitant]
     Active Substance: LOPERAMIDE HYDROCHLORIDE
     Dates: start: 20210526
  4. ENFORTUMAB VEDOTIN [Suspect]
     Active Substance: ENFORTUMAB VEDOTIN
     Indication: BLADDER CANCER
     Dosage: ?          OTHER FREQUENCY:DAYS 1,8,15;?
     Route: 041
     Dates: start: 20210526

REACTIONS (1)
  - SJS-TEN overlap [None]

NARRATIVE: CASE EVENT DATE: 20210614
